FAERS Safety Report 7630536-1 (Version None)
Quarter: 2011Q3

REPORT INFORMATION
  Report Type: 
  Country: None (occurrence: None)
  Receive Date: 20110722
  Receipt Date: 20110711
  Transmission Date: 20111222
  Serious: Yes (Disabling)
  Sender: FDA-Public Use
  Company Number: PHHY2011US57730

PATIENT
  Sex: Male
  Weight: 160 kg

DRUGS (8)
  1. GLIPIZIDE [Concomitant]
     Indication: DIABETES MELLITUS
     Dosage: 10 MG, QD
     Route: 048
     Dates: start: 20060501
  2. METFORMIN HCL [Concomitant]
     Indication: DIABETES MELLITUS
     Dosage: 500 MG, BID
     Route: 048
     Dates: start: 20060501
  3. PLAVIX [Concomitant]
     Indication: CORONARY ARTERY DISEASE
     Dosage: 75 MG, QD
     Route: 048
     Dates: start: 20060501
  4. GABAPENTIN [Concomitant]
     Dosage: 300 MG, TID
     Route: 048
  5. EXJADE [Suspect]
     Indication: IRON OVERLOAD
     Dosage: 500 MG, QD
     Route: 048
     Dates: start: 20100610
  6. LISINOPRIL [Concomitant]
     Indication: HYPERTENSION
     Dosage: 20 MG, QD
     Route: 048
     Dates: start: 20071101
  7. SIMVASTATIN [Concomitant]
     Indication: CORONARY ARTERY DISEASE
     Dosage: 20 MG, QD
     Dates: start: 20110601
  8. GLYBURIDE [Concomitant]
     Indication: DIABETES MELLITUS
     Dosage: 5 MG, BID
     Route: 048

REACTIONS (5)
  - PORPHYRIA NON-ACUTE [None]
  - DRY SKIN [None]
  - BLISTER [None]
  - SCAR [None]
  - SKIN LESION [None]
